FAERS Safety Report 18886127 (Version 1)
Quarter: 2021Q1

REPORT INFORMATION
  Report Type: Spontaneous
  Country: US (occurrence: US)
  Receive Date: 20210212
  Receipt Date: 20210212
  Transmission Date: 20210420
  Serious: No
  Sender: FDA-Public Use
  Company Number: None

PATIENT
  Age: 57 Year
  Sex: Female
  Weight: 63 kg

DRUGS (9)
  1. VITAMIN D3 [Concomitant]
     Active Substance: CHOLECALCIFEROL
  2. CA [Concomitant]
  3. OCUVITE BLUE LIGHT [Concomitant]
  4. DOXYCYCLINE MONO 50 MG CAP [Suspect]
     Active Substance: DOXYCYCLINE
     Indication: HORDEOLUM
     Dosage: ?          QUANTITY:1 CAPSULE(S);?
     Route: 048
     Dates: start: 20200820, end: 20200914
  5. COSAMIN DS [Concomitant]
     Active Substance: GLUCOSAMINE HYDROCHLORIDE\SODIUM CHONDROITIN SULFATE
  6. ZYRTEC [Concomitant]
     Active Substance: CETIRIZINE HYDROCHLORIDE
  7. VITAMIN E [Concomitant]
     Active Substance: .ALPHA.-TOCOPHEROL
  8. MG [Concomitant]
     Active Substance: MAGNESIUM
  9. TOBRAMYCIN OPHTHALMIC SOLUTION, USP 0.3% [Suspect]
     Active Substance: TOBRAMYCIN
     Indication: HORDEOLUM
     Dosage: ?          QUANTITY:1 DROP(S);?
     Route: 047
     Dates: start: 20201111, end: 20210204

REACTIONS (5)
  - Ocular hyperaemia [None]
  - Eye pain [None]
  - Eye swelling [None]
  - Pruritus [None]
  - Pain [None]

NARRATIVE: CASE EVENT DATE: 20210204
